FAERS Safety Report 8341888-1 (Version None)
Quarter: 2012Q2

REPORT INFORMATION
  Report Type: 
  Country: None (occurrence: None)
  Receive Date: 20120507
  Receipt Date: 20120430
  Transmission Date: 20120825
  Serious: Yes (Hospitalization, Other)
  Sender: FDA-Public Use
  Company Number: CA-TEVA-335922USA

PATIENT
  Age: 10 Year
  Sex: Male
  Weight: 44 kg

DRUGS (9)
  1. VALPROATE SODIUM [Concomitant]
     Route: 065
  2. FENTANYL [Suspect]
     Indication: SURGERY
     Route: 065
  3. PROPOFOL [Concomitant]
     Indication: SURGERY
     Route: 065
  4. MORPHINE [Suspect]
     Indication: SURGERY
     Route: 065
  5. OLANZAPINE [Suspect]
     Indication: ACCIDENTAL EXPOSURE
     Route: 065
  6. FLUVOXAMINE MALEATE [Concomitant]
     Route: 065
  7. METHYLPHENIDATE [Concomitant]
     Route: 065
  8. ACETAMINOPHEN W/ CODEINE [Suspect]
     Indication: SURGERY
     Route: 065
  9. ZIPRASIDONE HCL [Suspect]
     Route: 065

REACTIONS (6)
  - SEROTONIN SYNDROME [None]
  - BLOOD CREATINE PHOSPHOKINASE INCREASED [None]
  - AGITATION [None]
  - SYNCOPE [None]
  - ACCIDENTAL EXPOSURE [None]
  - AUTONOMIC NERVOUS SYSTEM IMBALANCE [None]
